FAERS Safety Report 10723017 (Version 1)
Quarter: 2015Q1

REPORT INFORMATION
  Report Type: Spontaneous
  Country: GB (occurrence: GB)
  Receive Date: 20150120
  Receipt Date: 20150120
  Transmission Date: 20150721
  Serious: Yes (Other)
  Sender: FDA-Public Use
  Company Number: GB-AUROBINDO-AUR-APL-2015-00207

PATIENT
  Age: 31 Year
  Sex: Female
  Weight: 56.5 kg

DRUGS (1)
  1. LEVETIRACTAM [Suspect]
     Active Substance: LEVETIRACETAM
     Indication: EPILEPSY
     Dosage: 1000 MG, ONCE A DAY
     Route: 048
     Dates: start: 200804, end: 20141217

REACTIONS (8)
  - Dyskinesia [Recovering/Resolving]
  - Fear [Recovering/Resolving]
  - Muscle spasms [Recovered/Resolved]
  - Depressed mood [Recovering/Resolving]
  - Feeling jittery [Recovering/Resolving]
  - Neck pain [Recovering/Resolving]
  - Tremor [Recovered/Resolved]
  - Musculoskeletal discomfort [Recovering/Resolving]

NARRATIVE: CASE EVENT DATE: 200804
